FAERS Safety Report 7768250 (Version 5)
Quarter: 2013Q2

REPORT INFORMATION
  Report Type: Spontaneous
  Country: US (occurrence: None)
  Receive Date: 20101209
  Receipt Date: 20130510
  Transmission Date: 20140414
  Serious: Yes (Death, Hospitalization, Other)
  Sender: FDA-Public Use
  Company Number: 011990

PATIENT
  Age: 49 Year
  Sex: Male

DRUGS (32)
  1. BUSULFAN [Suspect]
     Indication: STEM CELL TRANSPLANT
     Route: 042
     Dates: start: 20100923, end: 20100923
  2. ETOPOSIDE (ETOPOSIDE) [Concomitant]
  3. CYCLOPHOSPHAMIDE (CYCLOPHOSPHAMIDE) [Concomitant]
  4. DILTIAZEM [Concomitant]
  5. METOPROLOL TARTRATE [Concomitant]
  6. LORAZEPAM [Concomitant]
  7. ALUMINUM HYDROXIDE AND MAGNESIUM TRISILICATE [Concomitant]
  8. SENNA [Concomitant]
  9. URSODIOL [Concomitant]
  10. INSULIN GLARGINE (INSULIN GLARGINE) [Concomitant]
  11. ALPRAZOLAM (ALPRAZOLAM) [Concomitant]
  12. TRAZODONE HYDROCHLORIDE [Concomitant]
  13. DOCUSATE (DOCUSATE) [Concomitant]
  14. DIPHENHYDRAMINE HYDROCHLORIDE [Concomitant]
  15. ACETAMINOPHEN (PARACETAMOL) [Concomitant]
  16. ACYCLOVIR [Concomitant]
  17. FLUCONAZOLE [Concomitant]
  18. LANSOPRAZOLE (LANSOPRAZOLE) [Concomitant]
  19. MORPHINE [Concomitant]
  20. AMIODARONE (AMIODARONE) [Concomitant]
  21. CEFEPIME [Concomitant]
  22. VANCOMYCIN [Concomitant]
  23. BUMETANIDE [Concomitant]
  24. PANTOPRAZOLE [Concomitant]
  25. MEROPENEM [Concomitant]
  26. FENTANYL (FENTANYL) [Concomitant]
  27. METRONIDAZOLE [Concomitant]
  28. CLINDAMYCIN [Concomitant]
  29. LOPERAMIDE HYDROCHLORIDE [Concomitant]
  30. VORICONAZOLE [Concomitant]
  31. AZITHROMYCIN [Concomitant]
  32. GUAIFENESIN DM (DEXTROMETHORPHAN HYDROBROMIDE, GUAIFENESIN) [Concomitant]

REACTIONS (23)
  - Acute respiratory distress syndrome [None]
  - Acute respiratory failure [None]
  - Tachypnoea [None]
  - Septic shock [None]
  - BK virus infection [None]
  - Viraemia [None]
  - Cytomegalovirus viraemia [None]
  - Atrial fibrillation [None]
  - Hypoxia [None]
  - Tachycardia [None]
  - Abdominal distension [None]
  - Clostridium difficile colitis [None]
  - Pulmonary alveolar haemorrhage [None]
  - Pneumonia cytomegaloviral [None]
  - Febrile neutropenia [None]
  - Cystitis haemorrhagic [None]
  - Oropharyngeal pain [None]
  - Neck pain [None]
  - Abdominal pain [None]
  - Dizziness [None]
  - White blood cell count decreased [None]
  - Platelet count decreased [None]
  - Mucosal inflammation [None]
